FAERS Safety Report 24569933 (Version 2)
Quarter: 2024Q4

REPORT INFORMATION
  Report Type: Spontaneous
  Country: IT (occurrence: IT)
  Receive Date: 20241031
  Receipt Date: 20241106
  Transmission Date: 20250114
  Serious: Yes (Death, Life-Threatening, Other)
  Sender: NOVARTIS
  Company Number: IT-002147023-NVSC2024IT211307

PATIENT
  Age: 53 Year
  Sex: Female

DRUGS (10)
  1. KISQALI [Suspect]
     Active Substance: RIBOCICLIB
     Indication: Breast cancer
     Dosage: 600 MG, QD
     Route: 065
     Dates: start: 20240905, end: 20240918
  2. FULVESTRANT [Concomitant]
     Active Substance: FULVESTRANT
     Indication: Product used for unknown indication
     Dosage: 500 MG
     Route: 030
     Dates: start: 20240905
  3. FULVESTRANT [Concomitant]
     Active Substance: FULVESTRANT
     Dosage: 500 MG
     Route: 030
     Dates: start: 20240919
  4. FULVESTRANT [Concomitant]
     Active Substance: FULVESTRANT
     Dosage: 500 MG
     Route: 030
     Dates: start: 20241003
  5. BUPRENORPHINE [Concomitant]
     Active Substance: BUPRENORPHINE
     Indication: Product used for unknown indication
     Dosage: UNK (10 MCG/HR)
     Route: 065
     Dates: start: 20240919, end: 20241015
  6. NALOXONE HYDROCHLORIDE\OXYCODONE HYDROCHLORIDE [Concomitant]
     Active Substance: NALOXONE HYDROCHLORIDE\OXYCODONE HYDROCHLORIDE
     Indication: Product used for unknown indication
     Dosage: UNK (10/5 MG 1X2 DAYS)
     Route: 065
     Dates: end: 20241022
  7. OXYCONTIN [Concomitant]
     Active Substance: OXYCODONE HYDROCHLORIDE
     Indication: Product used for unknown indication
     Dosage: 15 MG (1X2 DAY)
     Route: 065
  8. METOCLOPRAMIDE HYDROCHLORIDE [Concomitant]
     Active Substance: METOCLOPRAMIDE HYDROCHLORIDE
     Indication: Product used for unknown indication
     Dosage: 1 DOSAGE FORM (30 MINS, BEFORE 3 MEALS)
     Route: 065
  9. Pursennid [Concomitant]
     Indication: Product used for unknown indication
     Dosage: UNK (1X2 DAYS)
     Route: 065
  10. VALGANCICLOVIR [Concomitant]
     Active Substance: VALGANCICLOVIR
     Indication: Product used for unknown indication
     Dosage: 450 MG, QD (2 TABLETS)
     Route: 065
     Dates: start: 20241023, end: 20241029

REACTIONS (10)
  - Hypertransaminasaemia [Fatal]
  - Coagulopathy [Fatal]
  - Cytomegalovirus infection [Fatal]
  - Transaminases abnormal [Fatal]
  - Hepatitis [Unknown]
  - Jaundice [Unknown]
  - Ascites [Unknown]
  - Chromaturia [Unknown]
  - Fatigue [Unknown]
  - Muscle atrophy [Unknown]

NARRATIVE: CASE EVENT DATE: 20240917
